FAERS Safety Report 6443267-0 (Version None)
Quarter: 2009Q4

REPORT INFORMATION
  Report Type: 
  Country: None (occurrence: None)
  Receive Date: 20091113
  Receipt Date: 20091105
  Transmission Date: 20100525
  Serious: Yes (Other)
  Sender: FDA-Public Use
  Company Number: 2009AC000368

PATIENT
  Sex: Female

DRUGS (2)
  1. DIGOXIN [Suspect]
     Dosage: 250 MCG; PO
     Route: 048
     Dates: start: 20071123, end: 20071203
  2. DIGOXIN [Suspect]
     Dosage: 125 MCG
     Dates: start: 20071205

REACTIONS (3)
  - CARDIOACTIVE DRUG LEVEL INCREASED [None]
  - ILL-DEFINED DISORDER [None]
  - INJURY [None]
